FAERS Safety Report 20965699 (Version 1)
Quarter: 2022Q2

REPORT INFORMATION
  Report Type: Spontaneous
  Country: FR (occurrence: FR)
  Receive Date: 20220616
  Receipt Date: 20220616
  Transmission Date: 20220721
  Serious: Yes (Other)
  Sender: FDA-Public Use
  Company Number: None

PATIENT
  Age: 52 Year
  Sex: Male

DRUGS (4)
  1. CLOZAPINE [Suspect]
     Active Substance: CLOZAPINE
     Route: 048
     Dates: start: 20220224, end: 20220224
  2. PIPAMPERONE [Suspect]
     Active Substance: PIPAMPERONE
     Dosage: 40 MG, SCORED TABLET
     Route: 048
     Dates: start: 20220224, end: 20220224
  3. OXAZEPAM [Suspect]
     Active Substance: OXAZEPAM
     Dosage: 50 MG, SCORED TABLET
     Route: 048
     Dates: start: 20220224, end: 20220224
  4. CYAMEMAZINE [Suspect]
     Active Substance: CYAMEMAZINE
     Route: 048
     Dates: start: 20220224, end: 20220224

REACTIONS (4)
  - Hypotension [Recovering/Resolving]
  - Wrong patient received product [Unknown]
  - Altered state of consciousness [Recovering/Resolving]
  - Product administration error [Unknown]

NARRATIVE: CASE EVENT DATE: 20220224
